FAERS Safety Report 7488075-7 (Version None)
Quarter: 2011Q2

REPORT INFORMATION
  Report Type: 
  Country: None (occurrence: None)
  Receive Date: 20110518
  Receipt Date: 20110512
  Transmission Date: 20111010
  Serious: Yes (Other)
  Sender: FDA-Public Use
  Company Number: IT-PFIZER INC-2011104046

PATIENT
  Sex: Male

DRUGS (1)
  1. DOXORUBICIN HCL [Suspect]

REACTIONS (2)
  - MOBILITY DECREASED [None]
  - DIARRHOEA [None]
